FAERS Safety Report 18440331 (Version 1)
Quarter: 2020Q4

REPORT INFORMATION
  Report Type: Spontaneous
  Country: DE (occurrence: FR)
  Receive Date: 20201029
  Receipt Date: 20201029
  Transmission Date: 20210114
  Serious: Yes (Other)
  Sender: FDA-Public Use
  Company Number: FR-ENDO PHARMACEUTICALS INC-2020-007019

PATIENT
  Sex: Male

DRUGS (4)
  1. AVEED [Suspect]
     Active Substance: TESTOSTERONE UNDECANOATE
     Dosage: UNK UNKNOWN, UNKNOWN
     Route: 030
     Dates: start: 2020
  2. AVEED [Suspect]
     Active Substance: TESTOSTERONE UNDECANOATE
     Indication: ANDROGEN DEFICIENCY
     Dosage: 1 DF, EVERY 3 MONTHS
     Route: 030
     Dates: start: 2010
  3. AVEED [Suspect]
     Active Substance: TESTOSTERONE UNDECANOATE
     Dosage: 1 DF, SINGLE
     Route: 030
     Dates: start: 202002, end: 202002
  4. ANDROTARDYL [Suspect]
     Active Substance: TESTOSTERONE
     Indication: ANDROGEN DEFICIENCY
     Dosage: UNK UNKNOWN, UNKNOWN
     Route: 065

REACTIONS (12)
  - Injection site pain [Unknown]
  - Hypotrichosis [Unknown]
  - Rash macular [Unknown]
  - Muscle hypertrophy [Unknown]
  - Erectile dysfunction [Unknown]
  - Alopecia [Unknown]
  - Libido decreased [Unknown]
  - Therapeutic product effect decreased [Unknown]
  - Penile size reduced [Unknown]
  - Dyspnoea [Unknown]
  - Testicular pain [Unknown]
  - Therapeutic product effect increased [Unknown]

NARRATIVE: CASE EVENT DATE: 2020
